FAERS Safety Report 4457540-9 (Version None)
Quarter: 2004Q3

REPORT INFORMATION
  Report Type: 
  Country: None (occurrence: None)
  Receive Date: 20040922
  Receipt Date: 20040913
  Transmission Date: 20050211
  Serious: Yes (Death, Other)
  Sender: FDA-Public Use
  Company Number: 200414296BCC

PATIENT
  Age: 0 Day
  Sex: Female

DRUGS (1)
  1. MILK OF MAGNESIA TAB [Suspect]
     Indication: CONSTIPATION
     Dosage: PRN, TRANSPLACENTAL
     Route: 064

REACTIONS (4)
  - BIRTH TRAUMA [None]
  - CEREBRAL PALSY [None]
  - DRUG EXPOSURE DURING PREGNANCY [None]
  - LEARNING DISABILITY [None]
